FAERS Safety Report 12976907 (Version 1)
Quarter: 2016Q4

REPORT INFORMATION
  Report Type: Report from Study
  Country: BR (occurrence: BR)
  Receive Date: 20161128
  Receipt Date: 20161128
  Transmission Date: 20170207
  Serious: Yes (Death)
  Sender: FDA-Public Use
  Company Number: PHHY2016BR161749

PATIENT
  Age: 83 Year
  Sex: Female

DRUGS (3)
  1. EXELON PATCH [Suspect]
     Active Substance: RIVASTIGMINE
     Indication: SENILE DEMENTIA
  2. EXELON PATCH [Suspect]
     Active Substance: RIVASTIGMINE
     Indication: MEMORY IMPAIRMENT
  3. EXELON PATCH [Suspect]
     Active Substance: RIVASTIGMINE
     Indication: NERVOUS SYSTEM DISORDER
     Dosage: 9.5 MG, QD PATCH 10 (CM2)
     Route: 062

REACTIONS (11)
  - Senile dementia [Fatal]
  - Weight decreased [Unknown]
  - Drug ineffective [Unknown]
  - Body surface area decreased [Unknown]
  - Renal failure [Fatal]
  - Parkinson^s disease [Fatal]
  - Multiple organ dysfunction syndrome [Fatal]
  - Hyperaesthesia [Unknown]
  - Pain [Unknown]
  - Cystitis [Fatal]
  - Sedation [Unknown]

NARRATIVE: CASE EVENT DATE: 20160928
